FAERS Safety Report 7098698-5 (Version None)
Quarter: 2010Q4

REPORT INFORMATION
  Report Type: 
  Country: None (occurrence: None)
  Receive Date: 20101112
  Receipt Date: 20101108
  Transmission Date: 20110411
  Serious: Yes (Hospitalization)
  Sender: FDA-Public Use
  Company Number: JP-SANOFI-AVENTIS-2010SA064344

PATIENT
  Age: 78 Year
  Sex: Male
  Weight: 62 kg

DRUGS (13)
  1. TAXOTERE [Suspect]
     Indication: PROSTATE CANCER
     Route: 041
     Dates: start: 20100825
  2. TAXOTERE [Suspect]
     Route: 041
     Dates: start: 20100921
  3. TAXOTERE [Suspect]
     Route: 041
     Dates: start: 20101021
  4. ALLOZYM [Concomitant]
     Route: 048
  5. TANATRIL ^TANABE^ [Concomitant]
     Route: 048
  6. ANPLAG [Concomitant]
     Route: 048
  7. JUVELA [Concomitant]
     Route: 048
  8. CALCIUM POLYSTYRENE SULFONATE [Concomitant]
     Route: 048
  9. HUMULIN 70/30 [Concomitant]
     Dosage: 12 U IN THE MORNING; 10 U IN THE EVENING
  10. ALOSENN [Concomitant]
     Route: 048
  11. DECADRON [Concomitant]
     Indication: PROSTATE CANCER
     Route: 048
     Dates: start: 20100824
  12. FLUTAMIDE [Concomitant]
     Indication: PROSTATE CANCER
     Route: 048
     Dates: start: 20100801
  13. LEUPLIN [Concomitant]
     Route: 042
     Dates: start: 20090101

REACTIONS (2)
  - HYPERGLYCAEMIA [None]
  - HYPERTENSIVE EMERGENCY [None]
